FAERS Safety Report 16384871 (Version 1)
Quarter: 2019Q2

REPORT INFORMATION
  Report Type: Spontaneous
  Country: US (occurrence: US)
  Receive Date: 20190603
  Receipt Date: 20190603
  Transmission Date: 20190711
  Serious: No
  Sender: FDA-Public Use
  Company Number: US-ASTRAZENECA-2019SE81648

PATIENT

DRUGS (1)
  1. PRILOSEC [Suspect]
     Active Substance: OMEPRAZOLE MAGNESIUM
     Indication: GASTROINTESTINAL DISORDER
     Route: 048

REACTIONS (5)
  - Pain [Unknown]
  - Rebound effect [Unknown]
  - Drug dependence [Unknown]
  - Hyperchlorhydria [Unknown]
  - Chronic kidney disease [Unknown]
